FAERS Safety Report 24792296 (Version 2)
Quarter: 2025Q1

REPORT INFORMATION
  Report Type: Report from Study
  Country: US (occurrence: US)
  Receive Date: 20241231
  Receipt Date: 20250220
  Transmission Date: 20250409
  Serious: Yes (Hospitalization, Other)
  Sender: TAKEDA
  Company Number: US-TAKEDA-2024TUS129928

PATIENT
  Age: 61 Year
  Sex: Female
  Weight: 77 kg

DRUGS (2)
  1. GLASSIA [Suspect]
     Active Substance: .ALPHA.1-PROTEINASE INHIBITOR HUMAN
     Indication: Alpha-1 antitrypsin deficiency
  2. GLASSIA [Suspect]
     Active Substance: .ALPHA.1-PROTEINASE INHIBITOR HUMAN
     Dosage: 60 MILLIGRAM/KILOGRAM, 1/WEEK

REACTIONS (6)
  - Pneumonia [Unknown]
  - Heart valve incompetence [Unknown]
  - Femur fracture [Unknown]
  - Bronchitis [Unknown]
  - Fall [Unknown]
  - Dyspnoea [Unknown]
